FAERS Safety Report 22669164 (Version 10)
Quarter: 2024Q1

REPORT INFORMATION
  Report Type: Report from Study
  Country: US (occurrence: US)
  Receive Date: 20230704
  Receipt Date: 20240125
  Transmission Date: 20240410
  Serious: Yes (Hospitalization, Other)
  Sender: FDA-Public Use
  Company Number: US-SA-2023SA193876

PATIENT
  Age: 82 Year
  Sex: Male
  Weight: 81.7 kg

DRUGS (23)
  1. CABAZITAXEL [Suspect]
     Active Substance: CABAZITAXEL
     Indication: Adenocarcinoma metastatic
     Dosage: 75 MG/M2, Q3W
     Route: 042
     Dates: start: 20230525, end: 20230525
  2. CABAZITAXEL [Suspect]
     Active Substance: CABAZITAXEL
     Indication: Neuroendocrine carcinoma metastatic
     Dosage: 75 MG/M2
     Route: 065
     Dates: start: 20230616
  3. DOCETAXEL [Suspect]
     Active Substance: DOCETAXEL\DOCETAXEL ANHYDROUS
     Indication: Adenocarcinoma metastatic
     Dosage: 75 MG/M2, Q3W
     Route: 042
     Dates: start: 20230525, end: 20230525
  4. DOCETAXEL [Suspect]
     Active Substance: DOCETAXEL\DOCETAXEL ANHYDROUS
     Indication: Neuroendocrine carcinoma metastatic
     Dosage: 75 MG/M2, Q3W
     Route: 042
     Dates: start: 20230616, end: 20230616
  5. DOCETAXEL [Suspect]
     Active Substance: DOCETAXEL\DOCETAXEL ANHYDROUS
     Dosage: 75 MG/M2, Q3W
     Route: 042
     Dates: start: 20230706, end: 20230706
  6. DOCETAXEL [Suspect]
     Active Substance: DOCETAXEL\DOCETAXEL ANHYDROUS
     Dosage: 75 MG/M2, Q3W
     Route: 042
     Dates: start: 20230727, end: 20230727
  7. DOCETAXEL [Suspect]
     Active Substance: DOCETAXEL\DOCETAXEL ANHYDROUS
     Dosage: 75 MG/M2, Q3W
     Route: 042
     Dates: start: 20230817, end: 20230817
  8. DOCETAXEL [Suspect]
     Active Substance: DOCETAXEL\DOCETAXEL ANHYDROUS
     Dosage: 75 MG/M2, Q3W
     Route: 042
     Dates: start: 20230907, end: 20230907
  9. DOCETAXEL [Suspect]
     Active Substance: DOCETAXEL\DOCETAXEL ANHYDROUS
     Dosage: 75 MG/M2, Q3W
     Route: 042
     Dates: start: 20230928, end: 20230928
  10. LEUPROLIDE ACETATE [Concomitant]
     Active Substance: LEUPROLIDE ACETATE
     Dosage: UNK
     Route: 065
  11. ELIQUIS [Concomitant]
     Active Substance: APIXABAN
     Dosage: UNK
     Route: 065
     Dates: start: 20220106
  12. GLUCOPHAGE XR [Concomitant]
     Active Substance: METFORMIN HYDROCHLORIDE
     Dosage: UNK
     Route: 065
     Dates: start: 20220106
  13. VITAMIN D3 [Concomitant]
     Active Substance: CHOLECALCIFEROL
     Dosage: UNK
     Route: 065
     Dates: start: 20170722
  14. DECADRON [Concomitant]
     Active Substance: DEXAMETHASONE
     Dosage: UNK
     Route: 065
     Dates: start: 20230525, end: 20230525
  15. VITAMIN C [Concomitant]
     Active Substance: ASCORBIC ACID
     Dosage: UNK
     Dates: start: 20230607
  16. NEURONTIN [Concomitant]
     Active Substance: GABAPENTIN
     Dosage: UNK
     Dates: start: 20230731
  17. OMNIPAQUE [Concomitant]
     Active Substance: IOHEXOL
     Dosage: UNK
     Dates: start: 20231002, end: 20231002
  18. TECHNETIUM TC-99M MEDRONATE [Concomitant]
     Active Substance: TECHNETIUM TC-99M MEDRONATE
     Dosage: UNK
     Dates: start: 20231002, end: 20231002
  19. LIDODERM [Concomitant]
     Active Substance: LIDOCAINE
     Dosage: UNK
     Dates: start: 20230817
  20. PREDNISONE [Concomitant]
     Active Substance: PREDNISONE
     Dosage: UNK
     Dates: start: 20230609
  21. ZOSTRIX [CAPSAICIN] [Concomitant]
     Dosage: UNK
     Dates: start: 20230731
  22. TYLENOL [Concomitant]
     Active Substance: ACETAMINOPHEN
     Dosage: UNK
     Dates: start: 20231012, end: 20231012
  23. MOMETASONE [Concomitant]
     Active Substance: MOMETASONE
     Dosage: UNK
     Dates: start: 20230831

REACTIONS (4)
  - Mental status changes [Not Recovered/Not Resolved]
  - Hypoxia [Recovered/Resolved]
  - Encephalopathy [Recovering/Resolving]
  - Dyspnoea [Recovered/Resolved]

NARRATIVE: CASE EVENT DATE: 20230606
